FAERS Safety Report 13021867 (Version 1)
Quarter: 2016Q4

REPORT INFORMATION
  Report Type: Report from Study
  Country: US (occurrence: US)
  Receive Date: 20161213
  Receipt Date: 20161213
  Transmission Date: 20170207
  Serious: Yes (Other)
  Sender: FDA-Public Use
  Company Number: US-ROCHE-1866087

PATIENT
  Age: 57 Year
  Sex: Female
  Weight: 67.5 kg

DRUGS (38)
  1. BEVACIZUMAB [Suspect]
     Active Substance: BEVACIZUMAB
     Dosage: CYCLE 7
     Route: 042
     Dates: start: 20140122
  2. BEVACIZUMAB [Suspect]
     Active Substance: BEVACIZUMAB
     Dosage: CYCLE 8
     Route: 042
     Dates: start: 20140218
  3. BEVACIZUMAB [Suspect]
     Active Substance: BEVACIZUMAB
     Dosage: CYCLE 16
     Route: 042
     Dates: start: 20141006
  4. BEVACIZUMAB [Suspect]
     Active Substance: BEVACIZUMAB
     Dosage: CYCLE 20
     Route: 042
     Dates: start: 20150126
  5. BEVACIZUMAB [Suspect]
     Active Substance: BEVACIZUMAB
     Dosage: CYCLE 22
     Route: 042
     Dates: start: 20150323
  6. BEVACIZUMAB [Suspect]
     Active Substance: BEVACIZUMAB
     Dosage: CYCLE 15
     Route: 042
     Dates: start: 20140908
  7. BEVACIZUMAB [Suspect]
     Active Substance: BEVACIZUMAB
     Dosage: CYCLE 19
     Route: 042
     Dates: start: 20141229
  8. BEVACIZUMAB [Suspect]
     Active Substance: BEVACIZUMAB
     Dosage: CYCLE 24
     Route: 042
     Dates: start: 20150518
  9. DASATINIB [Suspect]
     Active Substance: DASATINIB
     Dosage: CYCLE 5
     Route: 048
     Dates: start: 20131125
  10. BEVACIZUMAB [Suspect]
     Active Substance: BEVACIZUMAB
     Indication: NEOPLASM
     Dosage: CYCLE 1
     Route: 042
  11. BEVACIZUMAB [Suspect]
     Active Substance: BEVACIZUMAB
     Dosage: CYCLE 12
     Route: 042
     Dates: start: 20140618
  12. BEVACIZUMAB [Suspect]
     Active Substance: BEVACIZUMAB
     Dosage: CYCLE 18
     Route: 042
     Dates: start: 20141201
  13. BEVACIZUMAB [Suspect]
     Active Substance: BEVACIZUMAB
     Dosage: CYCLE 21
     Route: 042
     Dates: start: 20150223
  14. BEVACIZUMAB [Suspect]
     Active Substance: BEVACIZUMAB
     Dosage: CYCLE 23
     Route: 042
     Dates: start: 20150420
  15. DASATINIB [Suspect]
     Active Substance: DASATINIB
     Dosage: CYCLE 3
     Route: 048
     Dates: start: 20130930
  16. DASATINIB [Suspect]
     Active Substance: DASATINIB
     Dosage: CYCLE 12
     Route: 048
     Dates: start: 20140618
  17. BEVACIZUMAB [Suspect]
     Active Substance: BEVACIZUMAB
     Dosage: CYCLE 10
     Route: 042
     Dates: start: 20140421
  18. BEVACIZUMAB [Suspect]
     Active Substance: BEVACIZUMAB
     Dosage: CYCLE 13
     Route: 042
     Dates: start: 20140714
  19. BEVACIZUMAB [Suspect]
     Active Substance: BEVACIZUMAB
     Dosage: CYCLE 14
     Route: 042
     Dates: start: 20140811
  20. DASATINIB [Suspect]
     Active Substance: DASATINIB
     Indication: NEOPLASM
     Dosage: CYCLE 1
     Route: 048
  21. DASATINIB [Suspect]
     Active Substance: DASATINIB
     Dosage: CYCLE 7
     Route: 048
     Dates: start: 20140122
  22. DASATINIB [Suspect]
     Active Substance: DASATINIB
     Dosage: CYCLE 8
     Route: 048
     Dates: start: 20140218
  23. DASATINIB [Suspect]
     Active Substance: DASATINIB
     Dosage: CYCLE 9
     Route: 048
     Dates: start: 20140317
  24. DASATINIB [Suspect]
     Active Substance: DASATINIB
     Dosage: CYCLE 11
     Route: 048
     Dates: start: 20140519
  25. BEVACIZUMAB [Suspect]
     Active Substance: BEVACIZUMAB
     Dosage: CYCLE 11
     Route: 042
     Dates: start: 20140519
  26. BEVACIZUMAB [Suspect]
     Active Substance: BEVACIZUMAB
     Dosage: CYCLE 17
     Route: 042
     Dates: start: 20141103
  27. BEVACIZUMAB [Suspect]
     Active Substance: BEVACIZUMAB
     Dosage: CYCLE 25
     Route: 042
     Dates: start: 20150615
  28. BEVACIZUMAB [Suspect]
     Active Substance: BEVACIZUMAB
     Dosage: CYCLE 5
     Route: 042
     Dates: start: 20131125
  29. BEVACIZUMAB [Suspect]
     Active Substance: BEVACIZUMAB
     Dosage: CYCLE 6
     Route: 042
     Dates: start: 20131223
  30. BEVACIZUMAB [Suspect]
     Active Substance: BEVACIZUMAB
     Dosage: CYCLE 9
     Route: 042
     Dates: start: 20140317
  31. DASATINIB [Suspect]
     Active Substance: DASATINIB
     Dosage: CYCLE 4
     Route: 048
     Dates: start: 20131028
  32. DASATINIB [Suspect]
     Active Substance: DASATINIB
     Dosage: CYCLE 6
     Route: 048
     Dates: start: 20131223
  33. DASATINIB [Suspect]
     Active Substance: DASATINIB
     Dosage: CYCLE 13
     Route: 048
     Dates: start: 20140714
  34. DASATINIB [Suspect]
     Active Substance: DASATINIB
     Dosage: CYCLE 2
     Route: 048
     Dates: start: 20130903
  35. DASATINIB [Suspect]
     Active Substance: DASATINIB
     Dosage: CYCLE 10
     Route: 048
     Dates: start: 20140421
  36. BEVACIZUMAB [Suspect]
     Active Substance: BEVACIZUMAB
     Dosage: CYCLE 2
     Route: 042
     Dates: start: 20130903
  37. BEVACIZUMAB [Suspect]
     Active Substance: BEVACIZUMAB
     Dosage: CYCLE 3
     Route: 042
     Dates: start: 20130930
  38. BEVACIZUMAB [Suspect]
     Active Substance: BEVACIZUMAB
     Dosage: CYCLE 4
     Route: 042
     Dates: start: 20131028

REACTIONS (3)
  - Hypophosphataemia [Unknown]
  - Back pain [Unknown]
  - Hypertension [Unknown]
